FAERS Safety Report 8281018-8 (Version None)
Quarter: 2012Q2

REPORT INFORMATION
  Report Type: 
  Country: None (occurrence: None)
  Receive Date: 20120412
  Receipt Date: 20120328
  Transmission Date: 20120825
  Serious: Yes (Hospitalization)
  Sender: FDA-Public Use
  Company Number: AT-BAXTER-2012BAX001271

PATIENT
  Age: 27 Year
  Sex: Female

DRUGS (2)
  1. NATRIUM CHLORATUM PHYSIOLOG. ^BAXTER^ - INFUSIONSLOSUNG [Suspect]
     Indication: PLASMAPHERESIS
     Route: 042
     Dates: start: 20120326, end: 20120326
  2. SODIUM CITRATE [Suspect]
     Indication: ANTICOAGULANT THERAPY
     Route: 042
     Dates: start: 20120326, end: 20120326

REACTIONS (4)
  - SYNCOPE [None]
  - URINARY INCONTINENCE [None]
  - BLADDER SPASM [None]
  - LOSS OF CONSCIOUSNESS [None]
